FAERS Safety Report 4923277-2 (Version None)
Quarter: 2006Q1

REPORT INFORMATION
  Report Type: 
  Country: None (occurrence: None)
  Receive Date: 20060227
  Receipt Date: 20051019
  Transmission Date: 20060701
  Serious: Yes (Hospitalization)
  Sender: FDA-Public Use
  Company Number: FR-RB-2214-2005

PATIENT
  Age: 26 Year
  Sex: Female
  Weight: 66 kg

DRUGS (3)
  1. BUPRENORPHINE HCL [Suspect]
     Indication: DRUG DEPENDENCE
     Dosage: UNKNOWN DOSAGE
     Route: 048
  2. BUPRENORPHINE HCL [Suspect]
     Route: 048
     Dates: start: 20031201
  3. BUPRENORPHINE HCL [Suspect]
     Dates: start: 20060208

REACTIONS (2)
  - DEPRESSION [None]
  - DRUG EXPOSURE DURING PREGNANCY [None]
